FAERS Safety Report 10681437 (Version 1)
Quarter: 2014Q4

REPORT INFORMATION
  Report Type: Other
  Country: IT (occurrence: IT)
  Receive Date: 20141230
  Receipt Date: 20141230
  Transmission Date: 20150529
  Serious: Yes (Other)
  Sender: FDA-Public Use
  Company Number: IT-SUN PHARMACEUTICAL INDUSTRIES LTD-2014SUN02938

PATIENT

DRUGS (6)
  1. LEVOFOLINIC ACID (AS DISODIUM LEVOFOLINATE) [Concomitant]
     Dosage: 375 MG
     Route: 042
     Dates: start: 20140909, end: 20141126
  2. 1-U-D-5-DEOSSIRIBOFURANOSIL-5-FLUOROURACIL [Suspect]
     Active Substance: FLUOROURACIL
     Dosage: 4500 MG CYCLICAL
     Route: 041
     Dates: start: 20140909, end: 20141126
  3. 1-U-D-5-DEOSSIRIBOFURANOSIL-5-FLUOROURACIL [Suspect]
     Active Substance: FLUOROURACIL
     Indication: COLON CANCER METASTATIC
     Dosage: 750 MG CYCLICAL
     Route: 040
     Dates: start: 20140909, end: 20141126
  4. OXALIPLATIN. [Suspect]
     Active Substance: OXALIPLATIN
     Indication: COLON CANCER METASTATIC
     Dosage: 150 MG CYCLICAL
     Route: 042
     Dates: start: 20140909, end: 20141126
  5. AVASTIN [Suspect]
     Active Substance: BEVACIZUMAB
     Indication: COLON CANCER METASTATIC
     Dosage: 475 MG CYCLICAL
     Route: 042
     Dates: start: 20140909, end: 20141126
  6. 1-U-D-5-DEOSSIRIBOFURANOSIL-5-FLUOROURACIL [Suspect]
     Active Substance: FLUOROURACIL
     Dosage: UNK

REACTIONS (1)
  - Iron deficiency anaemia [Unknown]

NARRATIVE: CASE EVENT DATE: 20141106
